FAERS Safety Report 24526352 (Version 2)
Quarter: 2024Q4

REPORT INFORMATION
  Report Type: Spontaneous
  Country: MX (occurrence: MX)
  Receive Date: 20241021
  Receipt Date: 20241119
  Transmission Date: 20250114
  Serious: Yes (Disabling, Other)
  Sender: NOVO NORDISK
  Company Number: MX-NOVOPROD-1298365

PATIENT
  Age: 51 Year
  Sex: Male
  Weight: 71.5 kg

DRUGS (1)
  1. NOVOEIGHT [Suspect]
     Active Substance: ANTIHEMOPHILIC FACTOR, HUMAN RECOMBINANT
     Indication: Factor VIII deficiency
     Dosage: STARTED ABOUT 1 YEAR AGO
     Route: 042
     Dates: start: 2023

REACTIONS (1)
  - Chondropathy [Not Recovered/Not Resolved]

NARRATIVE: CASE EVENT DATE: 20240101
